FAERS Safety Report 21028260 (Version 1)
Quarter: 2022Q2

REPORT INFORMATION
  Report Type: Spontaneous
  Country: TR (occurrence: TR)
  Receive Date: 20220630
  Receipt Date: 20220630
  Transmission Date: 20220721
  Serious: Yes (Hospitalization)
  Sender: FDA-Public Use
  Company Number: TR-MACLEODS PHARMACEUTICALS US LTD-MAC2022036257

PATIENT

DRUGS (13)
  1. QUETIAPINE [Suspect]
     Active Substance: QUETIAPINE
     Indication: Hallucination, visual
     Dosage: 25 MILLIGRAM, QD
     Route: 065
     Dates: start: 200011
  2. QUETIAPINE [Suspect]
     Active Substance: QUETIAPINE
     Indication: Delusion
     Dosage: 100 MILLIGRAM, QD (BY 25-MG INCREMENTS EVERY 3 DAYS)
     Route: 065
  3. QUETIAPINE [Suspect]
     Active Substance: QUETIAPINE
     Dosage: 200 MILLIGRAM, QD (DOSE WAS INCREASED IN 25-MG INCREMENTS EVERY 3 DAYS)
     Route: 065
  4. QUETIAPINE [Suspect]
     Active Substance: QUETIAPINE
     Dosage: 500 MILLIGRAM, QD (500 MG/D WITH 25-MG INCREMENTS EVERY 3 DAYS IN A 1-MONTH PERIOD)
     Route: 065
     Dates: start: 200103, end: 200204
  5. QUETIAPINE [Suspect]
     Active Substance: QUETIAPINE
     Dosage: 150 MILLIGRAM, QD (LOWERED DOSE)
     Route: 065
  6. DONEPEZIL [Suspect]
     Active Substance: DONEPEZIL
     Indication: Dementia Alzheimer^s type
     Dosage: 5 MILLIGRAM, QD
     Route: 065
  7. DONEPEZIL [Suspect]
     Active Substance: DONEPEZIL
     Dosage: 5 MILLIGRAM, BID
     Route: 065
  8. DONEPEZIL [Suspect]
     Active Substance: DONEPEZIL
     Dosage: 5 MILLIGRAM, QD
     Route: 065
  9. CARBAMAZEPINE [Concomitant]
     Active Substance: CARBAMAZEPINE
     Indication: Dementia Alzheimer^s type
     Dosage: 200 MILLIGRAM, QD
     Route: 065
     Dates: start: 200009
  10. CARBAMAZEPINE [Concomitant]
     Active Substance: CARBAMAZEPINE
     Dosage: 400 MILLIGRAM, QD
     Route: 065
     Dates: start: 200103
  11. RIVASTIGMINE [Concomitant]
     Active Substance: RIVASTIGMINE
     Indication: Dementia Alzheimer^s type
     Dosage: 3 MILLIGRAM, QD
     Route: 065
  12. RIVASTIGMINE [Concomitant]
     Active Substance: RIVASTIGMINE
     Dosage: 6 MILLIGRAM, QD
     Route: 065
  13. RIVASTIGMINE [Concomitant]
     Active Substance: RIVASTIGMINE
     Dosage: 0.5 MILLIGRAM, QD

REACTIONS (6)
  - Generalised tonic-clonic seizure [Recovered/Resolved]
  - Sedation [Unknown]
  - Weight increased [Unknown]
  - Nausea [Recovered/Resolved]
  - Vomiting [Recovered/Resolved]
  - Drug ineffective [Unknown]

NARRATIVE: CASE EVENT DATE: 20020401
